FAERS Safety Report 6106945-9 (Version None)
Quarter: 2009Q1

REPORT INFORMATION
  Report Type: 
  Country: None (occurrence: None)
  Receive Date: 20090305
  Receipt Date: 20090305
  Transmission Date: 20090719
  Serious: No
  Sender: FDA-Public Use
  Company Number: None

PATIENT
  Age: 45 Year
  Sex: Male
  Weight: 76.6579 kg

DRUGS (1)
  1. CARVEDILOL [Suspect]
     Indication: BLOOD PRESSURE
     Dosage: 2 PER DAY ORAL
     Route: 048
     Dates: start: 20081201, end: 20090101

REACTIONS (2)
  - BLOOD PRESSURE INCREASED [None]
  - THERAPEUTIC RESPONSE UNEXPECTED WITH DRUG SUBSTITUTION [None]
